FAERS Safety Report 6765382-4 (Version None)
Quarter: 2010Q2

REPORT INFORMATION
  Report Type: 
  Country: None (occurrence: None)
  Receive Date: 20100611
  Receipt Date: 20100601
  Transmission Date: 20101027
  Serious: Yes (Other)
  Sender: FDA-Public Use
  Company Number: US-JNJFOC-20100503321

PATIENT
  Sex: Female
  Weight: 81.65 kg

DRUGS (8)
  1. REMICADE [Suspect]
     Indication: RHEUMATOID ARTHRITIS
     Dosage: 3 YEARS AGO
     Route: 042
  2. REMICADE [Suspect]
     Route: 042
  3. REMICADE [Suspect]
     Route: 042
  4. METHOTREXATE [Concomitant]
     Indication: RHEUMATOID ARTHRITIS
  5. CALCIUM CARBONATE [Concomitant]
  6. FOLIC ACID [Concomitant]
  7. VITAMIN TAB [Concomitant]
  8. ASPIRIN [Concomitant]

REACTIONS (5)
  - APPLICATION SITE REACTION [None]
  - MUSCLE RUPTURE [None]
  - NODULE ON EXTREMITY [None]
  - PAIN IN EXTREMITY [None]
  - SKIN WARM [None]
